FAERS Safety Report 7597897-3 (Version None)
Quarter: 2011Q3

REPORT INFORMATION
  Report Type: 
  Country: None (occurrence: None)
  Receive Date: 20110708
  Receipt Date: 20110627
  Transmission Date: 20111222
  Serious: Yes (Hospitalization)
  Sender: FDA-Public Use
  Company Number: SA-BRISTOL-MYERS SQUIBB COMPANY-15857006

PATIENT
  Age: 49 Year
  Sex: Male
  Weight: 100 kg

DRUGS (1)
  1. METFORMIN HCL [Suspect]
     Dosage: 1DF=40-45G

REACTIONS (8)
  - SUICIDE ATTEMPT [None]
  - LACTIC ACIDOSIS [None]
  - MYDRIASIS [None]
  - DEPRESSED LEVEL OF CONSCIOUSNESS [None]
  - INTENTIONAL OVERDOSE [None]
  - IRRITABILITY [None]
  - HAEMODYNAMIC INSTABILITY [None]
  - METABOLIC ACIDOSIS [None]
